FAERS Safety Report 8515653-6 (Version None)
Quarter: 2012Q3

REPORT INFORMATION
  Report Type: 
  Country: None (occurrence: None)
  Receive Date: 20120717
  Receipt Date: 20120711
  Transmission Date: 20120928
  Serious: Yes (Hospitalization, Other)
  Sender: FDA-Public Use
  Company Number: PHHY2012JP060399

PATIENT
  Sex: Female

DRUGS (22)
  1. MUCOSTA [Concomitant]
     Dosage: 300 MG, UNK
     Dates: start: 20100722
  2. LAXOBERON [Concomitant]
  3. ADALAT [Concomitant]
  4. LEVOTHYROXINE SODIUM [Concomitant]
     Dosage: 50 MG, UNK
     Dates: start: 20100722
  5. AFINITOR [Suspect]
     Indication: METASTATIC RENAL CELL CARCINOMA
     Dosage: 5 MG, DAILY
     Route: 048
     Dates: start: 20100722, end: 20101101
  6. SIMVASTATIN [Concomitant]
     Dosage: 5 MG, UNK
     Dates: start: 20100823
  7. GRAMALIL [Concomitant]
     Dosage: 50 MG, UNK
     Dates: start: 20100722
  8. SG [Concomitant]
  9. ENALAPRIL MALEATE [Concomitant]
     Dosage: 5 MG, UNK
     Dates: start: 20100722
  10. MICARDIS [Concomitant]
     Dosage: 80 MG, UNK
     Route: 048
     Dates: start: 20100722
  11. AZULENE [Concomitant]
     Dosage: 6 G, UNK
  12. SUNITINIB MALATE [Concomitant]
     Indication: METASTATIC RENAL CELL CARCINOMA
     Dosage: UNK
     Route: 048
     Dates: start: 20091014, end: 20100630
  13. BEZATOL - SLOW RELEASE [Concomitant]
     Dosage: 400 MG, UNK
     Route: 048
  14. TECELEUKIN [Concomitant]
     Indication: METASTATIC RENAL CELL CARCINOMA
     Dosage: UNK
     Dates: start: 20080226, end: 20090601
  15. DOXAZOSIN MESYLATE [Concomitant]
     Dosage: 6 MG, UNK
     Dates: start: 20100722
  16. LASIX [Concomitant]
     Dosage: UNK
     Dates: start: 20100722
  17. JUVELA [Concomitant]
     Dosage: 600 MG, UNK
     Dates: start: 20100722
  18. XYLOCAINE [Concomitant]
  19. INTERFERON ALFA [Concomitant]
     Indication: METASTATIC RENAL CELL CARCINOMA
     Dosage: 5000000 IU, UNK
     Dates: start: 20071115, end: 20090521
  20. SORAFENIB TOSILATE [Concomitant]
     Dosage: UNK
     Route: 048
     Dates: start: 20090606, end: 20091006
  21. TIZANIDINE HYDROCHLORIDE [Concomitant]
  22. LOXONIN [Concomitant]
     Dosage: 180 MG, UNK
     Route: 048

REACTIONS (5)
  - LOSS OF CONSCIOUSNESS [None]
  - PLEURAL EFFUSION [None]
  - SINUS TACHYCARDIA [None]
  - INTERSTITIAL LUNG DISEASE [None]
  - LYMPHADENOPATHY [None]
